FAERS Safety Report 23848792 (Version 1)
Quarter: 2024Q2

REPORT INFORMATION
  Report Type: Spontaneous
  Country: US (occurrence: US)
  Receive Date: 20240513
  Receipt Date: 20240513
  Transmission Date: 20240716
  Serious: Yes (Other)
  Sender: FDA-Public Use
  Company Number: US-002147023-NVSC2024US099671

PATIENT
  Sex: Female

DRUGS (1)
  1. LEQVIO [Suspect]
     Active Substance: INCLISIRAN SODIUM
     Indication: Low density lipoprotein increased
     Dosage: 284 MG (SUB Q ADMINISTERED 1 TIME, 3 MONTHS LATER, THEN EVERY 6 MONTHS THEREAFTER))
     Route: 058

REACTIONS (1)
  - Urinary tract infection [Unknown]
